FAERS Safety Report 9834479 (Version 2)
Quarter: 2014Q1

REPORT INFORMATION
  Report Type: Spontaneous
  Country: GB (occurrence: GB)
  Receive Date: 20140122
  Receipt Date: 20140122
  Transmission Date: 20141002
  Serious: Yes (Other)
  Sender: FDA-Public Use
  Company Number: GB-PFIZER INC-2013336996

PATIENT
  Age: 23 Year
  Sex: Female

DRUGS (2)
  1. SALAZOPYRIN [Suspect]
     Indication: JUVENILE IDIOPATHIC ARTHRITIS
     Dosage: 150 MG, DAILY (100MG IN THE MORNING 50MG IN THE EVENING)
     Route: 050
     Dates: start: 20130215
  2. PROPECIA [Concomitant]
     Indication: ALOPECIA
     Dosage: 1 MG, UNK
     Route: 050

REACTIONS (2)
  - Exposure via partner [Unknown]
  - Abortion spontaneous [Unknown]
